FAERS Safety Report 24147747 (Version 1)
Quarter: 2024Q3

REPORT INFORMATION
  Report Type: Spontaneous
  Country: US (occurrence: None)
  Receive Date: 20240727
  Receipt Date: 20240727
  Transmission Date: 20241017
  Serious: No
  Sender: Public
  Company Number: None

PATIENT
  Age: 76 Year
  Sex: Female
  Weight: 54 kg

DRUGS (20)
  1. PROLIA [Suspect]
     Active Substance: DENOSUMAB
     Indication: Osteoporosis
     Dates: start: 20240314, end: 20240314
  2. MYRBETRIQ [Concomitant]
     Active Substance: MIRABEGRON
  3. FAMOTIDINE [Concomitant]
     Active Substance: FAMOTIDINE
  4. MAXALT [Concomitant]
     Active Substance: RIZATRIPTAN BENZOATE
  5. CALCIUM [Concomitant]
     Active Substance: CALCIUM
  6. vitd3 [Concomitant]
  7. MAGNESIUM [Concomitant]
     Active Substance: MAGNESIUM
  8. MINERALS\VITAMINS [Concomitant]
     Active Substance: MINERALS\VITAMINS
  9. NUTRAFOL [Concomitant]
  10. COLLAGEN [Concomitant]
     Active Substance: COLLAGEN
  11. vitb12 [Concomitant]
  12. EXCEDRIN [Concomitant]
     Active Substance: ACETAMINOPHEN\ASPIRIN\CAFFEINE
  13. ALEVE [Concomitant]
     Active Substance: NAPROXEN SODIUM
  14. ADVIL [Concomitant]
     Active Substance: IBUPROFEN\IBUPROFEN SODIUM
  15. SINUS [Concomitant]
     Active Substance: ACETAMINOPHEN\CHLORPHENIRAMINE MALEATE\PHENYLEPHRINE HYDROCHLORIDE
  16. TYLENOL [Concomitant]
     Active Substance: ACETAMINOPHEN
  17. ZYRTEC [Concomitant]
     Active Substance: CETIRIZINE HYDROCHLORIDE
  18. otc meds [Concomitant]
  19. VITAMINS [Concomitant]
     Active Substance: VITAMINS
  20. MINERALS [Concomitant]

REACTIONS (6)
  - Gingival pain [None]
  - Stomatitis [None]
  - Oral mucosal blistering [None]
  - Oral discomfort [None]
  - Loose tooth [None]
  - Post procedural complication [None]

NARRATIVE: CASE EVENT DATE: 20240316
